FAERS Safety Report 10815317 (Version 1)
Quarter: 2015Q1

REPORT INFORMATION
  Report Type: Report from Study
  Country: BR (occurrence: BR)
  Receive Date: 20150218
  Receipt Date: 20150218
  Transmission Date: 20150721
  Serious: Yes (Death, Hospitalization, Other)
  Sender: FDA-Public Use
  Company Number: PHHY2015BR018362

PATIENT
  Age: 83 Year
  Sex: Male
  Weight: 106 kg

DRUGS (1)
  1. EXELON PATCH [Suspect]
     Active Substance: RIVASTIGMINE
     Indication: DEMENTIA ALZHEIMER^S TYPE
     Dosage: 4.6 MG (PATCH 9MG/5CM2), QD
     Route: 062

REACTIONS (9)
  - Renal disorder [Unknown]
  - Lung neoplasm malignant [Unknown]
  - Lung disorder [Unknown]
  - Renal impairment [Unknown]
  - Death [Fatal]
  - Hip fracture [Unknown]
  - Pneumonia [Unknown]
  - Infection [Unknown]
  - Dyspnoea [Unknown]
